FAERS Safety Report 9203651 (Version 1)
Quarter: 2013Q1

REPORT INFORMATION
  Report Type: Spontaneous
  Country: GB (occurrence: None)
  Receive Date: 20130329
  Receipt Date: 20130329
  Transmission Date: 20140127
  Serious: Yes (Other)
  Sender: FDA-Public Use
  Company Number: ABR_00884_2013

PATIENT
  Age: 70 Year
  Sex: Male

DRUGS (8)
  1. GLYCERYL TRINITRATE [Suspect]
     Indication: PRODUCT USED FOR UNKNOWN INDICATION
  2. DICYCLOMINE HYDROCHLORIDE [Suspect]
     Indication: MUSCLE SPASMS
     Route: 048
  3. AMLODIPINE [Concomitant]
  4. ATENOLOL [Concomitant]
  5. MORPHINE [Concomitant]
  6. ISOSORBIDE MONONITRATE [Concomitant]
  7. LIPITOR [Concomitant]
  8. RAMIPRIL [Concomitant]

REACTIONS (1)
  - Hiatus hernia [None]
